FAERS Safety Report 15410931 (Version 1)
Quarter: 2018Q3

REPORT INFORMATION
  Report Type: Spontaneous
  Country: US (occurrence: US)
  Receive Date: 20180921
  Receipt Date: 20180921
  Transmission Date: 20181010
  Serious: No
  Sender: FDA-Public Use
  Company Number: US-BEH-2018094978

PATIENT
  Sex: Female
  Weight: 72.56 kg

DRUGS (11)
  1. METOPROLOL SUCCINATE. [Concomitant]
     Active Substance: METOPROLOL SUCCINATE
  2. LISINOPRIL. [Concomitant]
     Active Substance: LISINOPRIL
  3. EVOXAC [Concomitant]
     Active Substance: CEVIMELINE HYDROCHLORIDE
  4. DANAZOL. [Concomitant]
     Active Substance: DANAZOL
  5. HAEGARDA [Suspect]
     Active Substance: HUMAN C1-ESTERASE INHIBITOR
     Indication: PROPHYLAXIS
  6. FENOFIBRATE. [Concomitant]
     Active Substance: FENOFIBRATE
  7. ASPIRIN. [Concomitant]
     Active Substance: ASPIRIN
  8. STERILE WATER [Concomitant]
     Active Substance: WATER
  9. HAEGARDA [Suspect]
     Active Substance: HUMAN C1-ESTERASE INHIBITOR
     Indication: HEREDITARY ANGIOEDEMA
     Dosage: 4000 IU, BIW (EVERY 3?4 DAYS)
     Route: 058
     Dates: start: 20180305
  10. EPINEPHRINE. [Concomitant]
     Active Substance: EPINEPHRINE
  11. DULOXETINE. [Concomitant]
     Active Substance: DULOXETINE

REACTIONS (1)
  - Pain [Unknown]
